FAERS Safety Report 10389100 (Version 1)
Quarter: 2014Q3

REPORT INFORMATION
  Report Type: Spontaneous
  Country: JP (occurrence: JP)
  Receive Date: 20140817
  Receipt Date: 20140817
  Transmission Date: 20150326
  Serious: No
  Sender: FDA-Public Use
  Company Number: PHHY2009JP072325

PATIENT

DRUGS (4)
  1. GLIVEC [Suspect]
     Active Substance: IMATINIB MESYLATE
     Indication: CHRONIC MYELOID LEUKAEMIA
     Dosage: 400 MG, DAILY
  2. TASIGNA [Suspect]
     Active Substance: NILOTINIB
     Dosage: 400 MG, DAILY
  3. TASIGNA [Suspect]
     Active Substance: NILOTINIB
     Dosage: 800 MG, DAILY
  4. DASATINIB [Concomitant]
     Active Substance: DASATINIB
     Dosage: UNK UKN, UNK

REACTIONS (6)
  - Pruritus generalised [Unknown]
  - Anaemia [Unknown]
  - Hepatic function abnormal [Unknown]
  - Eosinophilia [Unknown]
  - Malaise [Unknown]
  - Rash [Unknown]
